FAERS Safety Report 14227729 (Version 1)
Quarter: 2017Q4

REPORT INFORMATION
  Report Type: Spontaneous
  Country: US (occurrence: US)
  Receive Date: 20171127
  Receipt Date: 20171127
  Transmission Date: 20180321
  Serious: No
  Sender: FDA-Public Use
  Company Number: US-DUSA PHARMACEUTICALS, INC.-2036072

PATIENT
  Age: 14 Year
  Sex: Male

DRUGS (4)
  1. LEVULAN KERASTICK [Suspect]
     Active Substance: AMINOLEVULINIC ACID HYDROCHLORIDE
     Indication: ACNE
     Route: 061
     Dates: start: 20170223, end: 20170223
  2. ACZONE [Concomitant]
     Active Substance: DAPSONE
     Dates: end: 20170221
  3. MINOCYCLINE [Concomitant]
     Active Substance: MINOCYCLINE\MINOCYCLINE HYDROCHLORIDE
     Dates: end: 20170221
  4. ADAPALENE. [Concomitant]
     Active Substance: ADAPALENE
     Dates: end: 20170221

REACTIONS (3)
  - Application site pain [Recovered/Resolved]
  - Application site erythema [Recovered/Resolved]
  - Urticaria [Recovered/Resolved]

NARRATIVE: CASE EVENT DATE: 20170223
